FAERS Safety Report 7207379-6 (Version None)
Quarter: 2011Q1

REPORT INFORMATION
  Report Type: 
  Country: None (occurrence: None)
  Receive Date: 20110103
  Receipt Date: 20101228
  Transmission Date: 20110831
  Serious: Yes (Hospitalization)
  Sender: FDA-Public Use
  Company Number: JP-GENZYME-THYM-1002231

PATIENT
  Sex: Male
  Weight: 55 kg

DRUGS (11)
  1. THYMOGLOBULIN [Suspect]
     Dosage: 197.5 MG, QD
     Dates: start: 20100405, end: 20100405
  2. POVIDONE IODINE [Concomitant]
     Indication: PROPHYLAXIS
     Dosage: UNK
     Dates: start: 20100402
  3. BACTRIM [Concomitant]
     Indication: ANTIFUNGAL PROPHYLAXIS
     Dosage: UNK
     Dates: start: 20100402
  4. CHLORPHENIRAMINE MALEATE [Concomitant]
     Indication: PREMEDICATION
     Dosage: UNK
     Dates: start: 20100405, end: 20100405
  5. PREDNISOLONE ACETATE [Concomitant]
     Indication: PREMEDICATION
     Dosage: UNK
     Dates: start: 20100416, end: 20100429
  6. LANSOPRAZOLE [Concomitant]
     Indication: GASTRITIS PROPHYLAXIS
     Dosage: UNK
     Dates: start: 20100402
  7. ITRACONAZOLE [Concomitant]
     Indication: ANTIFUNGAL PROPHYLAXIS
     Dosage: UNK
     Dates: start: 20100402
  8. THYMOGLOBULIN [Suspect]
     Indication: APLASTIC ANAEMIA
     Dosage: 2.5 MG, ONCE
     Route: 042
     Dates: start: 20100405, end: 20100405
  9. METHYLPREDNISOLONE SODIUM SUCCINATE [Concomitant]
     Indication: PREMEDICATION
     Dosage: UNK
     Dates: start: 20100405, end: 20100415
  10. THYMOGLOBULIN [Suspect]
     Dosage: 200 MG, QD
     Route: 042
     Dates: start: 20100406, end: 20100409
  11. LENOGRASTIM [Concomitant]
     Indication: APLASTIC ANAEMIA
     Dosage: UNK
     Dates: start: 20100517, end: 20100621

REACTIONS (5)
  - FUNGAL INFECTION [None]
  - LIVER DISORDER [None]
  - PNEUMOTHORAX [None]
  - GASTRIC ULCER HAEMORRHAGE [None]
  - SEPSIS [None]
